FAERS Safety Report 6775140-2 (Version None)
Quarter: 2010Q2

REPORT INFORMATION
  Report Type: 
  Country: None (occurrence: None)
  Receive Date: 20100617
  Receipt Date: 20100615
  Transmission Date: 20101027
  Serious: Yes (Hospitalization)
  Sender: FDA-Public Use
  Company Number: JP-EISAI INC.-E2020-06853-SPO-JP

PATIENT
  Age: 70 Year
  Sex: Male

DRUGS (6)
  1. ARICEPT [Suspect]
     Indication: DEMENTIA ALZHEIMER'S TYPE
     Dosage: UNKNOWN
     Route: 048
     Dates: end: 20100601
  2. DIGITALIS TAB [Concomitant]
     Indication: ATRIAL FIBRILLATION
  3. SYMMETREL [Concomitant]
     Indication: PARKINSON'S DISEASE
     Route: 048
  4. EC-DOPARL [Concomitant]
     Indication: PARKINSON'S DISEASE
     Route: 048
  5. TENORMIN [Concomitant]
     Indication: ATRIAL FIBRILLATION
     Route: 048
  6. GASTER [Concomitant]
     Route: 048

REACTIONS (1)
  - ELECTROCARDIOGRAM QT PROLONGED [None]
